FAERS Safety Report 6682638-4 (Version None)
Quarter: 2010Q2

REPORT INFORMATION
  Report Type: 
  Country: None (occurrence: None)
  Receive Date: 20100415
  Receipt Date: 20100409
  Transmission Date: 20101027
  Serious: Yes (Death)
  Sender: FDA-Public Use
  Company Number: JP-BAYER-201011353BYL

PATIENT
  Age: 85 Year
  Sex: Male
  Weight: 46 kg

DRUGS (5)
  1. NEXAVAR [Suspect]
     Indication: HEPATIC NEOPLASM MALIGNANT
     Dosage: TOTAL DAILY DOSE: 400 MG  UNIT DOSE: 200 MG
     Route: 048
     Dates: start: 20100218, end: 20100316
  2. DILTIAZEM HYDROCHLORIDE [Concomitant]
     Indication: HYPERTENSION
     Dosage: UNIT DOSE: 100 MG
     Route: 048
     Dates: end: 20100316
  3. BUP-4 [Concomitant]
     Indication: NEUROGENIC BLADDER
     Dosage: UNIT DOSE: 10 MG
     Route: 048
     Dates: end: 20100316
  4. FAMOTIDINE [Concomitant]
     Indication: GASTRITIS
     Dosage: UNIT DOSE: 20 MG
     Route: 048
     Dates: end: 20100316
  5. URSO 250 [Concomitant]
     Indication: HEPATIC FUNCTION ABNORMAL
     Dosage: UNIT DOSE: 100 MG
     Route: 048
     Dates: end: 20100316

REACTIONS (1)
  - DROWNING [None]
